FAERS Safety Report 22079880 (Version 2)
Quarter: 2023Q2

REPORT INFORMATION
  Report Type: Spontaneous
  Country: AU (occurrence: AU)
  Receive Date: 20230309
  Receipt Date: 20230405
  Transmission Date: 20230722
  Serious: Yes (Hospitalization)
  Sender: FDA-Public Use
  Company Number: AU-AMGEN-AUSSP2023041510

PATIENT
  Age: 13 Year
  Sex: Male

DRUGS (2)
  1. XGEVA [Suspect]
     Active Substance: DENOSUMAB
     Indication: Aneurysmal bone cyst
     Dosage: 70 MILLIGRAM/ METER SQAURE ((OR 120 MG IFBODY WEIGHT} 50 KG) WEEKLY
     Route: 065
  2. XGEVA [Suspect]
     Active Substance: DENOSUMAB
     Indication: Off label use
     Dosage: 70 MILLIGRAM/ METER SQAURE ((OR 120 MG IFBODY WEIGHT} 50 KG), QMO
     Route: 065

REACTIONS (4)
  - Hypercalcaemia [Recovered/Resolved]
  - Drug effective for unapproved indication [Unknown]
  - Off label use [Unknown]
  - Hypocalcaemia [Recovered/Resolved]
